FAERS Safety Report 23593595 (Version 1)
Quarter: 2024Q1

REPORT INFORMATION
  Report Type: Report from Study
  Country: CA (occurrence: CA)
  Receive Date: 20240304
  Receipt Date: 20240304
  Transmission Date: 20240409
  Serious: Yes (Other)
  Sender: FDA-Public Use
  Company Number: CA-JNJFOC-20230143057

PATIENT
  Age: 64 Year
  Sex: Female

DRUGS (2)
  1. SIMPONI [Suspect]
     Active Substance: GOLIMUMAB
     Indication: Rheumatoid arthritis
     Route: 058
  2. SIMPONI [Suspect]
     Active Substance: GOLIMUMAB

REACTIONS (4)
  - Sjogren^s syndrome [Not Recovered/Not Resolved]
  - Visual impairment [Unknown]
  - Tooth abscess [Not Recovered/Not Resolved]
  - Inappropriate schedule of product administration [Unknown]
